FAERS Safety Report 15587555 (Version 3)
Quarter: 2019Q2

REPORT INFORMATION
  Report Type: Spontaneous
  Country: US (occurrence: US)
  Receive Date: 20181105
  Receipt Date: 20190422
  Transmission Date: 20190711
  Serious: No
  Sender: FDA-Public Use
  Company Number: US-PFIZER INC-2018313556

PATIENT
  Age: 82 Year
  Sex: Female

DRUGS (5)
  1. LYRICA [Suspect]
     Active Substance: PREGABALIN
     Dosage: 50 MG, UNK
  2. LYRICA [Suspect]
     Active Substance: PREGABALIN
     Indication: NEURALGIA
     Dosage: 25 MG, UNK; (AT LEAST TWICE SOMETIMES 3)
     Route: 048
     Dates: start: 2018
  3. IBUPROFEN. [Concomitant]
     Active Substance: IBUPROFEN
     Indication: MYALGIA
     Dosage: 400 MG, UNK; (AFTER EVERY MEAL UP TO A FOURTH TIME LATE IN THE DAY BEFORE BED)
  4. HYDROMORPHONE [Concomitant]
     Active Substance: HYDROMORPHONE
     Indication: PAIN
     Dosage: UNK; (4 MG PILL UP TO FOUR TIMES A DAY)
  5. LYRICA [Suspect]
     Active Substance: PREGABALIN
     Indication: ARTHRITIS
     Dosage: 25 MG, 3X/DAY
     Route: 048

REACTIONS (5)
  - Decreased appetite [Unknown]
  - Drug ineffective [Unknown]
  - Intentional product misuse [Unknown]
  - Somnolence [Recovering/Resolving]
  - Weight increased [Not Recovered/Not Resolved]

NARRATIVE: CASE EVENT DATE: 2018
